FAERS Safety Report 26107758 (Version 1)
Quarter: 2025Q4

REPORT INFORMATION
  Report Type: Spontaneous
  Country: US (occurrence: None)
  Receive Date: 20251130
  Receipt Date: 20251130
  Transmission Date: 20260117
  Serious: Yes (Life-Threatening, Hospitalization, Disabling)
  Sender: FDA-CTU
  Company Number: None

PATIENT
  Age: 58 Year
  Sex: Male
  Weight: 78.75 kg

DRUGS (7)
  1. ELIQUIS [Suspect]
     Active Substance: APIXABAN
     Indication: Epilepsy
     Dates: start: 20161202, end: 20240504
  2. ELIQUIS [Suspect]
     Active Substance: APIXABAN
     Indication: Coma
  3. DIVALPROEX SODIUM [Suspect]
     Active Substance: DIVALPROEX SODIUM
  4. METOPROLOL [Suspect]
     Active Substance: METOPROLOL
  5. AMIODARONE [Suspect]
     Active Substance: AMIODARONE
  6. DIAZEPAM [Suspect]
     Active Substance: DIAZEPAM
  7. KETAMINE [Suspect]
     Active Substance: KETAMINE

REACTIONS (2)
  - Cardiac fibrillation [None]
  - Drug hypersensitivity [None]

NARRATIVE: CASE EVENT DATE: 20251015
